FAERS Safety Report 8082945-7 (Version None)
Quarter: 2012Q1

REPORT INFORMATION
  Report Type: 
  Country: None (occurrence: None)
  Receive Date: 20120127
  Receipt Date: 20110308
  Transmission Date: 20120608
  Serious: No
  Sender: FDA-Public Use
  Company Number: US-ABBOTT-11P-163-0710345-00

PATIENT
  Sex: Female
  Weight: 56.296 kg

DRUGS (2)
  1. HUMIRA [Suspect]
     Indication: RHEUMATOID ARTHRITIS
     Route: 058
     Dates: start: 20100101, end: 20100101
  2. HUMIRA [Suspect]
     Route: 058
     Dates: start: 20100101

REACTIONS (4)
  - RHEUMATOID ARTHRITIS [None]
  - ARTHRALGIA [None]
  - DRUG INEFFECTIVE [None]
  - PAIN IN EXTREMITY [None]
